FAERS Safety Report 5053631-2 (Version None)
Quarter: 2006Q2

REPORT INFORMATION
  Report Type: 
  Country: None (occurrence: None)
  Receive Date: 20060614
  Receipt Date: 20060502
  Transmission Date: 20061013
  Serious: Yes (Other)
  Sender: FDA-Public Use
  Company Number: 446805

PATIENT
  Sex: Female

DRUGS (1)
  1. BONIVA [Suspect]
     Indication: DRUG USE FOR UNKNOWN INDICATION
     Dates: start: 20060430

REACTIONS (5)
  - CHEST PAIN [None]
  - CHILLS [None]
  - DYSPEPSIA [None]
  - FATIGUE [None]
  - HEADACHE [None]
